FAERS Safety Report 11519216 (Version 5)
Quarter: 2015Q4

REPORT INFORMATION
  Report Type: Report from Study
  Country: CH (occurrence: CH)
  Receive Date: 20150917
  Receipt Date: 20151001
  Transmission Date: 20160304
  Serious: Yes (Other)
  Sender: FDA-Public Use
  Company Number: CH-ROCHE-1634285

PATIENT
  Age: 53 Year
  Sex: Female
  Weight: 70 kg

DRUGS (29)
  1. DEXAMETHASON [Concomitant]
     Active Substance: DEXAMETHASONE
     Indication: PREMEDICATION
     Route: 065
     Dates: start: 20140924
  2. PERTUZUMAB [Suspect]
     Active Substance: PERTUZUMAB
     Indication: HER-2 POSITIVE BREAST CANCER
     Dosage: LOADING DOSE
     Route: 042
     Dates: start: 20141218, end: 20141218
  3. PURSANA [Concomitant]
     Active Substance: FIG FRUIT OIL\SORBITOL
     Indication: CONSTIPATION
     Route: 065
     Dates: start: 20150327
  4. ROSMARINUS [Concomitant]
     Route: 065
     Dates: start: 20150327
  5. HELICHRYSUM ITALICUM [Concomitant]
     Route: 065
     Dates: start: 20150327
  6. BUSCOPAN [Concomitant]
     Active Substance: BUTYLSCOPOLAMINE BROMIDE
     Indication: ABDOMINAL PAIN
     Route: 065
     Dates: start: 20150103
  7. PASPERTIN (SWITZERLAND) [Concomitant]
     Active Substance: METOCLOPRAMIDE HYDROCHLORIDE
     Indication: ANTIEMETIC SUPPORTIVE CARE
     Route: 065
     Dates: start: 20140924
  8. LISINOPRIL. [Concomitant]
     Active Substance: LISINOPRIL
     Indication: HYPERTONIA
     Route: 065
     Dates: start: 20150129
  9. LAXOBERON [Concomitant]
     Active Substance: SODIUM PICOSULFATE
     Indication: CONSTIPATION
     Route: 065
     Dates: start: 20150327
  10. OLIBANUM [Concomitant]
     Indication: ANTIINFLAMMATORY THERAPY
     Route: 065
     Dates: start: 20150327
  11. DOXORUBICIN [Suspect]
     Active Substance: DOXORUBICIN
     Indication: HER-2 POSITIVE BREAST CANCER
     Route: 065
     Dates: start: 20140924
  12. CIMIFEMIN UNO [Concomitant]
     Indication: MENOPAUSE
     Route: 065
     Dates: start: 20150108
  13. LUVOS (SWITZERLAND) [Concomitant]
     Indication: DYSPEPSIA
     Route: 065
     Dates: start: 20150327
  14. CONVALLARIA [Concomitant]
     Route: 065
     Dates: start: 20150327
  15. TRASTUZUMAB [Suspect]
     Active Substance: TRASTUZUMAB
     Dosage: MAINTAENANCE DOSE:?LAST DOSE PRIOR TO SAE: 31/AUG/2015
     Route: 042
     Dates: start: 20150108
  16. CYCLOPHOSPHAMIDE. [Suspect]
     Active Substance: CYCLOPHOSPHAMIDE
     Indication: HER-2 POSITIVE BREAST CANCER
     Route: 065
     Dates: start: 20140924
  17. TAVEGYL [Concomitant]
     Active Substance: CLEMASTINE FUMARATE
     Indication: HYPERSENSITIVITY
     Route: 065
     Dates: start: 20141218
  18. BRYOPHYLLUM CONCHAE [Concomitant]
     Route: 065
     Dates: start: 20150327
  19. TRASTUZUMAB [Suspect]
     Active Substance: TRASTUZUMAB
     Indication: HER-2 POSITIVE BREAST CANCER
     Dosage: LOADING DOSE
     Route: 042
     Dates: start: 20141218, end: 20141218
  20. FEMARA [Suspect]
     Active Substance: LETROZOLE
     Indication: BREAST CANCER
     Route: 065
     Dates: start: 20150609
  21. REMERON [Concomitant]
     Active Substance: MIRTAZAPINE
     Indication: ANTIDEPRESSANT THERAPY
     Route: 065
     Dates: start: 20150327
  22. PERTUZUMAB [Suspect]
     Active Substance: PERTUZUMAB
     Dosage: MAINTENANCE DOSE?LAST DOSE RIOR TO SAE: 31/AUG/2015
     Route: 042
     Dates: start: 20150108
  23. EMEND [Concomitant]
     Active Substance: APREPITANT
     Indication: PREMEDICATION
     Route: 065
     Dates: start: 20140924
  24. ZANTAC [Concomitant]
     Active Substance: RANITIDINE HYDROCHLORIDE
     Indication: ANTACID THERAPY
     Route: 065
     Dates: start: 20141218
  25. SOLUM ULIGINOSUM (AESCULUS HIPPOCASTANUM E SEMINE FERM/EQUISETI HERBA [Concomitant]
     Route: 065
     Dates: start: 20150327
  26. SOLU-MEDROL [Concomitant]
     Active Substance: METHYLPREDNISOLONE SODIUM SUCCINATE
     Indication: PREMEDICATION
     Route: 065
     Dates: start: 20140924
  27. ALOXI [Concomitant]
     Active Substance: PALONOSETRON HYDROCHLORIDE
     Indication: PREMEDICATION
     Route: 065
     Dates: start: 20140924
  28. CHOLEODORON [Concomitant]
     Indication: DYSPEPSIA
     Route: 065
     Dates: start: 20150327
  29. ISCADOR [Concomitant]
     Active Substance: VISCUM ALBUM FRUITING TOP
     Indication: THERAPEUTIC PROCEDURE
     Route: 065
     Dates: start: 20150327

REACTIONS (1)
  - Arthralgia [Recovered/Resolved]

NARRATIVE: CASE EVENT DATE: 20150911
